FAERS Safety Report 5562718-7 (Version None)
Quarter: 2007Q4

REPORT INFORMATION
  Report Type: 
  Country: None (occurrence: None)
  Receive Date: 20071211
  Receipt Date: 20071211
  Transmission Date: 20080405
  Serious: Yes (Other)
  Sender: FDA-Public Use
  Company Number: None

PATIENT
  Sex: Male
  Weight: 78 kg

DRUGS (2)
  1. CHANTIX [Suspect]
     Indication: SMOKING CESSATION THERAPY
     Dosage: STARTER PACK  DAILY TO BID  PO
     Route: 048
     Dates: start: 20070901, end: 20070930
  2. ALPRAZOLAM [Concomitant]

REACTIONS (2)
  - AGGRESSION [None]
  - ANGER [None]
